FAERS Safety Report 15430718 (Version 6)
Quarter: 2019Q2

REPORT INFORMATION
  Report Type: Spontaneous
  Country: JP (occurrence: JP)
  Receive Date: 20180926
  Receipt Date: 20190423
  Transmission Date: 20190711
  Serious: Yes (Death, Life-Threatening, Hospitalization, Disabling, Other)
  Sender: FDA-Public Use
  Company Number: JP-ACTELION-A-CH2017-153879

PATIENT
  Age: 78 Year
  Sex: Female
  Weight: 37 kg

DRUGS (36)
  1. UPTRAVI [Suspect]
     Active Substance: SELEXIPAG
     Dosage: 1 MG, BID
     Route: 048
     Dates: start: 20180126, end: 20180329
  2. UPTRAVI [Suspect]
     Active Substance: SELEXIPAG
     Dosage: 1 MG, BID
     Route: 048
     Dates: start: 20180831, end: 20181206
  3. LASIX [Suspect]
     Active Substance: FUROSEMIDE
     Indication: RIGHT VENTRICULAR FAILURE
     Dosage: 40 MG, QD
     Route: 048
     Dates: start: 20170113, end: 20180619
  4. SPIRONOLACTONE. [Suspect]
     Active Substance: SPIRONOLACTONE
     Indication: ASCITES
  5. OLMETEC [Concomitant]
     Active Substance: OLMESARTAN MEDOXOMIL
     Indication: HYPERTENSION
     Dosage: 10 MG, QD
     Dates: start: 20180110
  6. TAKEPRON [Concomitant]
     Active Substance: LANSOPRAZOLE
     Dosage: 300 MG, QD
     Dates: start: 20180617, end: 20180618
  7. CEFAZOLIN NA [Concomitant]
     Active Substance: CEFAZOLIN SODIUM
     Indication: PYREXIA
     Dosage: 1 G, QD
     Dates: start: 20180617, end: 20180619
  8. DOBUPUM [Concomitant]
     Active Substance: DOBUTAMINE HYDROCHLORIDE
     Indication: CARDIAC FAILURE
     Dosage: 1 DF, QD
     Dates: start: 20180621
  9. UPTRAVI [Suspect]
     Active Substance: SELEXIPAG
     Dosage: 1.6 MG, BID
     Route: 048
     Dates: start: 20181207, end: 20190206
  10. SPIRONOLACTONE. [Suspect]
     Active Substance: SPIRONOLACTONE
     Indication: RIGHT VENTRICULAR FAILURE
     Dosage: 25 MG, QD
     Route: 048
     Dates: start: 20161118, end: 20180810
  11. OXYGEN. [Concomitant]
     Active Substance: OXYGEN
  12. FENTANYL. [Concomitant]
     Active Substance: FENTANYL
     Dosage: 0.1 MG, QD
     Dates: start: 20180618, end: 20180620
  13. OPSUMIT [Suspect]
     Active Substance: MACITENTAN
     Indication: PULMONARY ARTERIAL HYPERTENSION
     Dosage: 10 MG, QD
     Route: 048
     Dates: start: 20160716
  14. ADCIRCA [Suspect]
     Active Substance: TADALAFIL
     Indication: PULMONARY ARTERIAL HYPERTENSION
     Dosage: 20 MG, BID
     Route: 048
     Dates: start: 20161118, end: 20180628
  15. SPIRONOLACTONE. [Suspect]
     Active Substance: SPIRONOLACTONE
     Indication: PLEURAL EFFUSION
  16. SELARA [Concomitant]
     Active Substance: EPLERENONE
     Indication: HYPERTENSION
  17. ADCIRCA [Suspect]
     Active Substance: TADALAFIL
     Dosage: 20 MG, BID
     Route: 048
     Dates: start: 20180824
  18. AMLODIPINE [Concomitant]
     Active Substance: AMLODIPINE BESYLATE
     Indication: HYPERTENSION
     Dosage: 5 MG, QD
  19. LOPEMIN [Concomitant]
     Active Substance: LOPERAMIDE HYDROCHLORIDE
     Indication: DIARRHOEA
     Dosage: 1 MG, QD
     Dates: start: 20170915
  20. REMIFENTANIL [Concomitant]
     Active Substance: REMIFENTANIL
     Dosage: 2 MG, QD
     Dates: start: 20180618, end: 20180618
  21. PREDONINE [Concomitant]
     Active Substance: PREDNISOLONE
     Indication: SCLERODERMA
     Dosage: UNK
     Dates: start: 20181208, end: 20181220
  22. LASIX [Suspect]
     Active Substance: FUROSEMIDE
     Indication: PLEURAL EFFUSION
  23. LASIX [Suspect]
     Active Substance: FUROSEMIDE
     Indication: ASCITES
  24. CEFAZOLIN NA [Concomitant]
     Active Substance: CEFAZOLIN SODIUM
     Dosage: 1 G, QD
     Dates: start: 20180728, end: 20180806
  25. UPTRAVI [Suspect]
     Active Substance: SELEXIPAG
     Dosage: 0.8 MG, BID
     Route: 048
     Dates: start: 20170407, end: 20180125
  26. CARELOAD [Concomitant]
     Active Substance: BERAPROST SODIUM
  27. POTASSIUM ASPARTATE [Concomitant]
     Active Substance: POTASSIUM ASPARTATE
     Indication: HYPOKALAEMIA
     Dosage: 10 MEQ, QD
     Dates: start: 20181227, end: 20181228
  28. UPTRAVI [Suspect]
     Active Substance: SELEXIPAG
     Dosage: 0.4 MG, BID
     Route: 048
     Dates: start: 20170310, end: 20170323
  29. UPTRAVI [Suspect]
     Active Substance: SELEXIPAG
     Dosage: 0.6 MG, BID
     Route: 048
     Dates: start: 20170324, end: 20180406
  30. ADCIRCA [Suspect]
     Active Substance: TADALAFIL
     Dosage: 20 MG, QD
     Route: 048
     Dates: start: 20180629, end: 20180823
  31. BAYASPIRIN [Concomitant]
     Active Substance: ASPIRIN
     Dosage: 100 MG, QD
     Dates: end: 20180617
  32. REVATIO [Concomitant]
     Active Substance: SILDENAFIL CITRATE
  33. HEPARIN SODIUM. [Concomitant]
     Active Substance: HEPARIN SODIUM
     Dosage: 100 IU, QD
     Dates: start: 20180626, end: 20180627
  34. UPTRAVI [Suspect]
     Active Substance: SELEXIPAG
     Indication: PULMONARY ARTERIAL HYPERTENSION
     Dosage: 0.2 MG, BID
     Route: 048
     Dates: start: 20170224, end: 20170309
  35. UPTRAVI [Suspect]
     Active Substance: SELEXIPAG
     Dosage: 1.2 MG, QD
     Route: 048
     Dates: start: 20180330, end: 20180830
  36. FAMOTIDINE. [Concomitant]
     Active Substance: FAMOTIDINE
     Dosage: 20 MG, QD
     Dates: start: 20180617, end: 20180617

REACTIONS (38)
  - Ascites [Unknown]
  - Tracheostomy [Unknown]
  - Pericardial effusion [Recovered/Resolved]
  - Insomnia [Unknown]
  - Haemoptysis [Recovered/Resolved]
  - Hypotension [Recovered/Resolved]
  - Hypoxia [Recovered/Resolved]
  - Oxygen saturation abnormal [Recovering/Resolving]
  - Chronic gastritis [Recovering/Resolving]
  - Urinary tract infection [Recovered/Resolved]
  - Hepatic enzyme increased [Recovered/Resolved]
  - Pneumonia aspiration [Unknown]
  - Pulmonary arterial hypertension [Fatal]
  - Primary biliary cholangitis [Not Recovered/Not Resolved]
  - Diarrhoea [Unknown]
  - Pneumonia [Recovered/Resolved]
  - Brain natriuretic peptide increased [Recovering/Resolving]
  - Condition aggravated [Fatal]
  - Nephrogenic anaemia [Unknown]
  - Iron deficiency anaemia [Recovering/Resolving]
  - Platelet count decreased [Recovering/Resolving]
  - Renal impairment [Recovered/Resolved]
  - Depression [Unknown]
  - Right ventricular failure [Recovered/Resolved]
  - Headache [Unknown]
  - Hypokalaemia [Unknown]
  - Blood pressure decreased [Recovered/Resolved]
  - Aortic aneurysm [Not Recovered/Not Resolved]
  - Brain herniation [Recovered/Resolved]
  - Pleural effusion [Unknown]
  - Melaena [Recovered/Resolved]
  - Blood pressure abnormal [Recovering/Resolving]
  - Hepatic cirrhosis [Unknown]
  - Pyrexia [Recovered/Resolved]
  - Subdural haematoma [Recovered/Resolved]
  - Craniotomy [Recovered/Resolved]
  - Treatment noncompliance [Unknown]
  - Productive cough [Unknown]

NARRATIVE: CASE EVENT DATE: 20170113
